FAERS Safety Report 4528961-0 (Version None)
Quarter: 2004Q4

REPORT INFORMATION
  Report Type: 
  Country: None (occurrence: None)
  Receive Date: 20041214
  Receipt Date: 20041201
  Transmission Date: 20050328
  Serious: Yes (Other)
  Sender: FDA-Public Use
  Company Number: 2004-00876

PATIENT
  Age: 60 Year
  Sex: Male
  Weight: 80 kg

DRUGS (2)
  1. VELCADE [Suspect]
     Indication: MULTIPLE MYELOMA
     Dosage: 2.6 MG, 2/WEEK; INTRAVENOUS
     Route: 042
     Dates: start: 20040901
  2. NAVOBAN (TROPISETRON HYDROCHLORIDE) [Concomitant]

REACTIONS (3)
  - DRUG ERUPTION [None]
  - EXANTHEM [None]
  - SKIN NODULE [None]
